FAERS Safety Report 8186784-8 (Version None)
Quarter: 2012Q1

REPORT INFORMATION
  Report Type: 
  Country: None (occurrence: None)
  Receive Date: 20120306
  Receipt Date: 20120306
  Transmission Date: 20120608
  Serious: No
  Sender: FDA-Public Use
  Company Number: None

PATIENT
  Age: 59 Year
  Sex: Female
  Weight: 58.967 kg

DRUGS (1)
  1. BONIVA [Suspect]
     Indication: OSTEOPENIA
     Dosage: 150MG TABLET
     Route: 048
     Dates: start: 20120120, end: 20120220

REACTIONS (5)
  - HEART RATE IRREGULAR [None]
  - CHEST PAIN [None]
  - ABDOMINAL DISCOMFORT [None]
  - ARTHRALGIA [None]
  - MUSCULAR WEAKNESS [None]
